FAERS Safety Report 7781448-4 (Version None)
Quarter: 2011Q3

REPORT INFORMATION
  Report Type: 
  Country: None (occurrence: None)
  Receive Date: 20110927
  Receipt Date: 20110923
  Transmission Date: 20111222
  Serious: Yes (Death, Other)
  Sender: FDA-Public Use
  Company Number: PHHY2011GB84654

PATIENT
  Age: 68 Year
  Sex: Male

DRUGS (2)
  1. FLUOROURACIL [Suspect]
     Indication: RECTAL CANCER
     Dosage: 500 MG, UNK
     Dates: start: 20110516, end: 20110808
  2. OXALIPLATIN [Suspect]
     Indication: RECTAL CANCER
     Dosage: 160 MG, UNK
     Dates: start: 20110516, end: 20110808

REACTIONS (2)
  - ACUTE HEPATIC FAILURE [None]
  - EMBOLISM VENOUS [None]
